FAERS Safety Report 4972740-7 (Version None)
Quarter: 2006Q2

REPORT INFORMATION
  Report Type: 
  Country: None (occurrence: None)
  Receive Date: 20060414
  Receipt Date: 20060405
  Transmission Date: 20061013
  Serious: Yes (Other)
  Sender: FDA-Public Use
  Company Number: US-JNJFOC-20060401654

PATIENT
  Sex: Male
  Weight: 107.96 kg

DRUGS (5)
  1. REMICADE [Suspect]
     Route: 042
  2. REMICADE [Suspect]
     Indication: CROHN'S DISEASE
     Route: 042
  3. 5-ASA [Concomitant]
     Dosage: DURATION GREATER THAN 6 MONTHS
  4. ANTIBIOTICS [Concomitant]
     Dosage: DURATION 3-6 MONTHS
  5. 6-MP [Concomitant]
     Dosage: DURATION 3-6 MONTHS

REACTIONS (2)
  - DRUG INEFFECTIVE [None]
  - RECTAL FISTULA REPAIR [None]
